FAERS Safety Report 14582956 (Version 1)
Quarter: 2018Q1

REPORT INFORMATION
  Report Type: Spontaneous
  Country: US (occurrence: US)
  Receive Date: 20180228
  Receipt Date: 20180228
  Transmission Date: 20180509
  Serious: Yes (Other)
  Sender: FDA-Public Use
  Company Number: US-SA-2018SA052567

PATIENT
  Age: 79 Year
  Sex: Female

DRUGS (2)
  1. SOLOSTAR [Suspect]
     Active Substance: DEVICE
     Indication: TYPE 2 DIABETES MELLITUS
     Dates: start: 2015
  2. LANTUS SOLOSTAR [Suspect]
     Active Substance: INSULIN GLARGINE
     Indication: TYPE 2 DIABETES MELLITUS
     Dosage: DOSE- 15 UNITS/25 UNITS
     Route: 051
     Dates: start: 2015

REACTIONS (3)
  - Cardiac disorder [Unknown]
  - Atrial fibrillation [Unknown]
  - Product use issue [Unknown]

NARRATIVE: CASE EVENT DATE: 2015
